FAERS Safety Report 6100523-3 (Version None)
Quarter: 2009Q1

REPORT INFORMATION
  Report Type: 
  Country: None (occurrence: None)
  Receive Date: 20090226
  Receipt Date: 20090218
  Transmission Date: 20090719
  Serious: Yes (Death)
  Sender: FDA-Public Use
  Company Number: 041556

PATIENT
  Age: 62 Year
  Sex: Female

DRUGS (2)
  1. NYSTATIN [Suspect]
  2. CEFUROXIME [Suspect]

REACTIONS (1)
  - ACUTE RESPIRATORY DISTRESS SYNDROME [None]
